FAERS Safety Report 26122504 (Version 1)
Quarter: 2025Q4

REPORT INFORMATION
  Report Type: Spontaneous
  Country: CH (occurrence: CH)
  Receive Date: 20251204
  Receipt Date: 20251204
  Transmission Date: 20260118
  Serious: Yes (Death, Other)
  Sender: UCB
  Company Number: None

PATIENT
  Age: 73 Year
  Weight: 79 kg

DRUGS (13)
  1. KEPPRA [Suspect]
     Active Substance: LEVETIRACETAM
     Indication: Status epilepticus
     Dosage: 1500 MILLIGRAM, 2X/DAY (BID)
  2. VIMPAT [Interacting]
     Active Substance: LACOSAMIDE
     Indication: Status epilepticus
     Dosage: 200 MILLIGRAM, 2X/DAY (BID)
  3. ARGIPRESSIN [Interacting]
     Active Substance: ARGIPRESSIN
     Indication: Product used for unknown indication
     Dosage: UNK
  4. MIDAZOLAM HYDROCHLORIDE [Suspect]
     Active Substance: MIDAZOLAM HYDROCHLORIDE
     Indication: Product used for unknown indication
     Dosage: 30 -} 20 -} 15 -} 10 MG/H
  5. PROPOFOL [Interacting]
     Active Substance: PROPOFOL
     Indication: Status epilepticus
     Dosage: 1440 MILLIGRAM TOTAL
  6. PROPOFOL [Interacting]
     Active Substance: PROPOFOL
     Dosage: 7800 MILLIGRAM TOTAL
  7. PROPOFOL [Interacting]
     Active Substance: PROPOFOL
     Dosage: 10800 MILLIGRAM TOTAL
  8. PROPOFOL [Interacting]
     Active Substance: PROPOFOL
     Dosage: 12500 MILLIGRAM TOTAL
  9. KETAMIN [Suspect]
     Active Substance: KETAMINE
     Indication: Status epilepticus
     Dosage: 250 MILLIGRAM, HOURLY
  10. VALPROATE SODIUM [Interacting]
     Active Substance: VALPROATE SODIUM
     Indication: Epilepsy
     Dosage: 450 MILLIGRAM, 2X/DAY (BID)
  11. SOLU-CORTEF [Concomitant]
     Active Substance: HYDROCORTISONE SODIUM SUCCINATE
     Indication: Sepsis
     Dosage: 200 MILLIGRAM, ONCE DAILY (QD)
  12. NOREPINEPHRINE [Concomitant]
     Active Substance: NOREPINEPHRINE
     Indication: Product used for unknown indication
     Dosage: UNK
  13. AMOXICILLIN\CLAVULANATE POTASSIUM [Concomitant]
     Active Substance: AMOXICILLIN\CLAVULANATE POTASSIUM
     Indication: Pneumonia aspiration
     Dosage: 2400 MILLIGRAM, ONCE DAILY (QD)

REACTIONS (2)
  - Atrioventricular block complete [Fatal]
  - Drug interaction [Fatal]
